FAERS Safety Report 4533617-4 (Version None)
Quarter: 2004Q4

REPORT INFORMATION
  Report Type: 
  Country: None (occurrence: None)
  Receive Date: 20041210
  Receipt Date: 20040203
  Transmission Date: 20050328
  Serious: No
  Sender: FDA-Public Use
  Company Number: 02P-163-0202392-00

PATIENT
  Sex: Female

DRUGS (1)
  1. MERIDIA [Suspect]
     Dates: end: 20001025

REACTIONS (1)
  - ISCHAEMIC STROKE [None]
